FAERS Safety Report 17386046 (Version 1)
Quarter: 2020Q1

REPORT INFORMATION
  Report Type: Spontaneous
  Country: US (occurrence: US)
  Receive Date: 20200206
  Receipt Date: 20200206
  Transmission Date: 20200409
  Serious: No
  Sender: FDA-Public Use
  Company Number: US-ABBVIE-19K-163-3190949-00

PATIENT
  Age: 14 Year
  Sex: Female
  Weight: 54.48 kg

DRUGS (7)
  1. HUMIRA [Suspect]
     Active Substance: ADALIMUMAB
     Indication: CROHN^S DISEASE
     Dosage: CITRATE FREE
     Route: 058
     Dates: start: 2019
  2. HUMIRA [Suspect]
     Active Substance: ADALIMUMAB
     Indication: CONSTIPATION
     Route: 058
     Dates: start: 20180711, end: 2019
  3. MELATONIN [Concomitant]
     Active Substance: MELATONIN
     Indication: INSOMNIA
  4. HUMIRA [Suspect]
     Active Substance: ADALIMUMAB
     Indication: ABDOMINAL PAIN UPPER
  5. VITAMIN D [Concomitant]
     Active Substance: VITAMIN D NOS
     Indication: VITAMIN SUPPLEMENTATION
     Dates: end: 20191123
  6. CALCIUM [Concomitant]
     Active Substance: CALCIUM
     Indication: MINERAL SUPPLEMENTATION
     Dates: end: 201911
  7. CETIRIZINE [Concomitant]
     Active Substance: CETIRIZINE HYDROCHLORIDE
     Indication: SEASONAL ALLERGY

REACTIONS (18)
  - Abdominal distension [Not Recovered/Not Resolved]
  - Nasopharyngitis [Recovered/Resolved]
  - Weight decreased [Not Recovered/Not Resolved]
  - Oropharyngeal discomfort [Unknown]
  - Oropharyngeal pain [Unknown]
  - Decreased appetite [Not Recovered/Not Resolved]
  - Rash papular [Not Recovered/Not Resolved]
  - Dry skin [Not Recovered/Not Resolved]
  - Fatigue [Unknown]
  - Dry skin [Recovering/Resolving]
  - Influenza [Recovered/Resolved]
  - Malaise [Unknown]
  - Dysphagia [Unknown]
  - Tonsillar erythema [Unknown]
  - Hypophagia [Not Recovered/Not Resolved]
  - Lethargy [Unknown]
  - Fluid intake reduced [Not Recovered/Not Resolved]
  - Injection site pain [Recovered/Resolved]

NARRATIVE: CASE EVENT DATE: 2018
